FAERS Safety Report 5141692-1 (Version None)
Quarter: 2006Q4

REPORT INFORMATION
  Report Type: 
  Country: None (occurrence: None)
  Receive Date: 20061026
  Receipt Date: 20061018
  Transmission Date: 20070319
  Serious: Yes (Death, Other)
  Sender: FDA-Public Use
  Company Number: 163-21880-06080518

PATIENT
  Sex: Female

DRUGS (11)
  1. REVLIMID [Suspect]
     Indication: MULTIPLE MYELOMA
     Dosage: 10 MG TO 20 MG, DAILY, ORAL
     Route: 048
     Dates: start: 20060614, end: 20060812
  2. OXYCONTIN [Concomitant]
  3. WELLBUTRIN [Concomitant]
  4. ESTRATEST [Concomitant]
  5. SKELAXIN [Concomitant]
  6. TEMAZEPAM [Concomitant]
  7. LASIX [Concomitant]
  8. REGLAN [Concomitant]
  9. NEURONTIN [Concomitant]
  10. ELAVIL [Concomitant]
  11. PREVACID [Concomitant]

REACTIONS (1)
  - ROAD TRAFFIC ACCIDENT [None]
